FAERS Safety Report 10192861 (Version 1)
Quarter: 2014Q2

REPORT INFORMATION
  Report Type: Spontaneous
  Country: US (occurrence: US)
  Receive Date: 20140523
  Receipt Date: 20140523
  Transmission Date: 20141212
  Serious: Yes (Other)
  Sender: FDA-Public Use
  Company Number: US-ABBVIE-14P-163-1238198-00

PATIENT
  Age: 58 Year
  Sex: Male

DRUGS (3)
  1. ADALIMUMAB [Suspect]
     Indication: ARTHRITIS
  2. PREDNISONE [Concomitant]
     Indication: SJOGREN^S SYNDROME
  3. PREDNISONE [Concomitant]

REACTIONS (1)
  - Lupus nephritis [Recovered/Resolved]
